FAERS Safety Report 18708574 (Version 2)
Quarter: 2021Q1

REPORT INFORMATION
  Report Type: Report from Study
  Country: AU (occurrence: AU)
  Receive Date: 20210106
  Receipt Date: 20210304
  Transmission Date: 20210419
  Serious: Yes (Hospitalization, Other)
  Sender: FDA-Public Use
  Company Number: AU-PFIZER INC-2021003426

PATIENT
  Weight: 11.6 kg

DRUGS (14)
  1. PIPERACILLIN AND TAZOBACTAM [Concomitant]
     Active Substance: PIPERACILLIN SODIUM\TAZOBACTAM SODIUM
     Indication: GRANULICATELLA INFECTION
     Dosage: 140 MG, 4X/DAY
     Dates: start: 20200103
  2. TRIMETHOPRIM SULFAMETHOXAZOLE [Concomitant]
     Active Substance: SULFAMETHOXAZOLE\TRIMETHOPRIM
     Indication: PROPHYLAXIS
     Dosage: 2.6 MG, 2X/DAY
     Dates: start: 20201130
  3. AMPHOTERICIN B LIPOSOMAL [Concomitant]
     Active Substance: AMPHOTERICIN B
     Indication: FUNGAL INFECTION
     Dosage: 30 MG, DAILY
     Dates: start: 20201215
  4. MITOXANTRONE HCL [Suspect]
     Active Substance: MITOXANTRONE HYDROCHLORIDE
     Indication: ACUTE MYELOID LEUKAEMIA
     Dosage: 6 MG/M2, DAILY
     Route: 042
     Dates: start: 20201124, end: 20210110
  5. PIPERACILLIN AND TAZOBACTAM [Concomitant]
     Active Substance: PIPERACILLIN SODIUM\TAZOBACTAM SODIUM
     Indication: INFECTION
     Dosage: 109 MG, 4X/DAY
     Dates: start: 20201111, end: 20201219
  6. VANCOMYCIN [Concomitant]
     Active Substance: VANCOMYCIN
     Indication: INFECTION
     Dosage: 200 MG, 4X/DAY
     Dates: start: 20201215
  7. ONDANSETRON [Concomitant]
     Active Substance: ONDANSETRON
     Indication: NAUSEA
     Dosage: 2 MG, 3X/DAY
     Dates: start: 20201125
  8. PARACETAMOL [Concomitant]
     Active Substance: ACETAMINOPHEN
     Indication: PYREXIA
     Dosage: 0.2 MG, 1X/DAY
     Dates: start: 20201219
  9. DEXAMETHASONE. [Concomitant]
     Active Substance: DEXAMETHASONE
     Indication: SWELLING
     Dosage: 2 MG, DAILY
     Dates: start: 20201222
  10. ATROPINE. [Concomitant]
     Active Substance: ATROPINE
     Indication: BRADYCARDIA
     Dosage: 0.2 MG, 1X/DAY
     Dates: start: 20201222, end: 20201222
  11. FENTANYL. [Concomitant]
     Active Substance: FENTANYL
     Indication: ANAESTHESIA
     Dosage: 2.5 UG, AS NEEDED
     Dates: start: 20201222, end: 20201222
  12. MEROPENEM. [Concomitant]
     Active Substance: MEROPENEM
     Indication: INFECTION
     Dosage: 460 MG, 3X/DAY
     Dates: start: 20201223, end: 20210103
  13. GEMTUZUMAB OZOGAMICIN [Suspect]
     Active Substance: GEMTUZUMAB OZOGAMICIN
     Indication: ACUTE MYELOID LEUKAEMIA
     Dosage: 1.5 MG (OTHER)
     Route: 042
     Dates: start: 20201128, end: 20201128
  14. AMLODIPINE [Concomitant]
     Active Substance: AMLODIPINE BESYLATE
     Indication: HYPERTENSION
     Dosage: 0.2 MG, DAILY
     Dates: start: 20201219, end: 20201221

REACTIONS (2)
  - Febrile neutropenia [Not Recovered/Not Resolved]
  - Soft tissue infection [Recovered/Resolved]

NARRATIVE: CASE EVENT DATE: 20201211
